FAERS Safety Report 4964694-4 (Version None)
Quarter: 2006Q2

REPORT INFORMATION
  Report Type: 
  Country: None (occurrence: None)
  Receive Date: 20060406
  Receipt Date: 20050913
  Transmission Date: 20061013
  Serious: Yes (Hospitalization)
  Sender: FDA-Public Use
  Company Number: US-MERCK-0509USA01820

PATIENT
  Age: 57 Year
  Sex: Female
  Weight: 89 kg

DRUGS (1)
  1. VIOXX [Suspect]
     Indication: ARTHRITIS
     Route: 048
     Dates: start: 20010222, end: 20040901

REACTIONS (14)
  - ANGINA UNSTABLE [None]
  - BLOOD CHOLESTEROL INCREASED [None]
  - CHEST PAIN [None]
  - COLONIC POLYP [None]
  - CORONARY ARTERY DISEASE [None]
  - DIVERTICULUM [None]
  - DIVERTICULUM INTESTINAL [None]
  - HAEMATURIA [None]
  - HAEMORRHAGE [None]
  - HEPATIC LESION [None]
  - ISCHAEMIA [None]
  - MYOCARDIAL INFARCTION [None]
  - RECTAL POLYP [None]
  - UTERINE HAEMORRHAGE [None]
